FAERS Safety Report 17773859 (Version 3)
Quarter: 2020Q2

REPORT INFORMATION
  Report Type: Report from Study
  Country: None (occurrence: CA)
  Receive Date: 20200513
  Receipt Date: 20200623
  Transmission Date: 20200714
  Serious: Yes (Life-Threatening, Hospitalization, Other)
  Sender: FDA-Public Use
  Company Number: CA-ABBVIE-19K-028-2974903-00

PATIENT
  Age: 41 Year
  Sex: Male
  Weight: 72.64 kg

DRUGS (4)
  1. HUMIRA [Suspect]
     Active Substance: ADALIMUMAB
     Indication: PSORIASIS
     Route: 058
     Dates: start: 20150226, end: 20190928
  2. CANNABIS [Concomitant]
     Active Substance: CANNABIS SATIVA SUBSP. INDICA TOP
     Indication: PAIN
  3. RESTORALAX [Concomitant]
     Active Substance: POLYETHYLENE GLYCOL 3350
     Indication: PRODUCT USED FOR UNKNOWN INDICATION
     Dosage: AS NEEDED.
     Dates: start: 20200617
  4. HUMIRA [Suspect]
     Active Substance: ADALIMUMAB
     Route: 058
     Dates: start: 2020

REACTIONS (15)
  - Colitis [Unknown]
  - Pelvic pain [Unknown]
  - Large intestinal stenosis [Unknown]
  - Diverticulitis [Recovering/Resolving]
  - Gastrointestinal disorder [Unknown]
  - Contusion [Not Recovered/Not Resolved]
  - Injection site bruising [Not Recovered/Not Resolved]
  - Large intestinal stenosis [Recovering/Resolving]
  - Renal impairment [Unknown]
  - Injection site pain [Not Recovered/Not Resolved]
  - Weight decreased [Unknown]
  - Headache [Unknown]
  - Blood pH increased [Unknown]
  - Suprapubic pain [Unknown]
  - Abdominal pain lower [Unknown]

NARRATIVE: CASE EVENT DATE: 20190908
